FAERS Safety Report 19052047 (Version 1)
Quarter: 2021Q1

REPORT INFORMATION
  Report Type: Spontaneous
  Country: CN (occurrence: CN)
  Receive Date: 20210324
  Receipt Date: 20210324
  Transmission Date: 20210420
  Serious: Yes (Hospitalization, Other)
  Sender: FDA-Public Use
  Company Number: CN-PFIZER INC-2021276626

PATIENT
  Age: 36 Year
  Sex: Female
  Weight: 140 kg

DRUGS (3)
  1. VFEND [Suspect]
     Active Substance: VORICONAZOLE
     Dosage: 0.2 G, TWICE A DAY
     Route: 041
     Dates: start: 20210226, end: 20210228
  2. VFEND [Suspect]
     Active Substance: VORICONAZOLE
     Indication: FUNGAL INFECTION
     Dosage: 0.4 G, TWICE A DAY (Q12H)
     Route: 041
     Dates: start: 20210225, end: 20210226
  3. SODIUM CHLORIDE. [Concomitant]
     Active Substance: SODIUM CHLORIDE
     Indication: VEHICLE SOLUTION USE
     Dosage: 100 ML, 2X/DAY
     Route: 041
     Dates: start: 20210225, end: 20210228

REACTIONS (7)
  - Agitation [Recovered/Resolved]
  - Hyperhidrosis [Recovering/Resolving]
  - Speech disorder [Recovering/Resolving]
  - Hallucination, visual [Recovered/Resolved]
  - Insomnia [Recovering/Resolving]
  - Euphoric mood [Recovering/Resolving]
  - Hallucination, auditory [Recovered/Resolved]

NARRATIVE: CASE EVENT DATE: 202102
